FAERS Safety Report 10287494 (Version 2)
Quarter: 2014Q3

REPORT INFORMATION
  Report Type: Spontaneous
  Country: US (occurrence: US)
  Receive Date: 20140709
  Receipt Date: 20140709
  Transmission Date: 20150326
  Serious: Yes (Hospitalization)
  Sender: FDA-Public Use
  Company Number: US-GLAXOSMITHKLINE-B0702237A

PATIENT
  Sex: Female

DRUGS (5)
  1. PREVACID [Concomitant]
     Active Substance: LANSOPRAZOLE
  2. ZESTRIL [Concomitant]
     Active Substance: LISINOPRIL
  3. SULAR [Concomitant]
     Active Substance: NISOLDIPINE
  4. LIPITOR [Concomitant]
     Active Substance: ATORVASTATIN CALCIUM
  5. AVANDIA [Suspect]
     Active Substance: ROSIGLITAZONE MALEATE
     Indication: TYPE 2 DIABETES MELLITUS
     Dosage: 2MG PER DAY
     Route: 048
     Dates: start: 20050425, end: 2009

REACTIONS (4)
  - Cardiac failure congestive [Unknown]
  - Oedema peripheral [Unknown]
  - Coronary artery disease [Unknown]
  - Atrial fibrillation [Not Recovered/Not Resolved]
